FAERS Safety Report 12186853 (Version 1)
Quarter: 2016Q1

REPORT INFORMATION
  Report Type: Spontaneous
  Country: US (occurrence: None)
  Receive Date: 20160316
  Receipt Date: 20160316
  Transmission Date: 20160526
  Serious: Yes (Hospitalization)
  Sender: FDA-Public Use
  Company Number: None

PATIENT
  Age: 59 Year
  Sex: Female
  Weight: 77.7 kg

DRUGS (1)
  1. CISPLATIN. [Suspect]
     Active Substance: CISPLATIN
     Dates: end: 20160222

REACTIONS (10)
  - Pyrexia [None]
  - Atelectasis [None]
  - Haemoglobin decreased [None]
  - Pleural effusion [None]
  - Pneumonia [None]
  - Fluid overload [None]
  - Neutropenia [None]
  - Hypotension [None]
  - Septic shock [None]
  - Thrombocytopenia [None]

NARRATIVE: CASE EVENT DATE: 20160225
